FAERS Safety Report 13133785 (Version 3)
Quarter: 2017Q2

REPORT INFORMATION
  Report Type: Spontaneous
  Country: JP (occurrence: JP)
  Receive Date: 20170120
  Receipt Date: 20170413
  Transmission Date: 20170830
  Serious: Yes (Hospitalization)
  Sender: FDA-Public Use
  Company Number: JP-JNJFOC-20170117806

PATIENT
  Age: 55 Year
  Sex: Male

DRUGS (2)
  1. TRAMAL OD [Suspect]
     Active Substance: TRAMADOL
     Indication: LUMBAR SPINAL STENOSIS
     Route: 048
     Dates: start: 2016, end: 20170106
  2. TRAMAL OD [Suspect]
     Active Substance: TRAMADOL
     Indication: PAIN
     Route: 048
     Dates: start: 2016, end: 20170106

REACTIONS (3)
  - Dyskinesia [Unknown]
  - Myoclonus [Unknown]
  - Asterixis [Recovered/Resolved]

NARRATIVE: CASE EVENT DATE: 20170106
